FAERS Safety Report 12476360 (Version 1)
Quarter: 2016Q2

REPORT INFORMATION
  Report Type: Report from Study
  Country: US (occurrence: US)
  Receive Date: 20160617
  Receipt Date: 20160617
  Transmission Date: 20160815
  Serious: Yes (Other)
  Sender: FDA-Public Use
  Company Number: US-ACTELION-A-NJ2016-137980

PATIENT
  Sex: Female

DRUGS (1)
  1. UPTRAVI [Suspect]
     Active Substance: SELEXIPAG
     Indication: PRODUCT USED FOR UNKNOWN INDICATION
     Route: 048

REACTIONS (7)
  - Loss of consciousness [Unknown]
  - Foaming at mouth [Unknown]
  - Hypoxia [Unknown]
  - Hypopnoea [Unknown]
  - Joint lock [Unknown]
  - Pallor [Unknown]
  - Eye movement disorder [Unknown]
